FAERS Safety Report 18070292 (Version 4)
Quarter: 2020Q4

REPORT INFORMATION
  Report Type: Spontaneous
  Country: CN (occurrence: CN)
  Receive Date: 20200727
  Receipt Date: 20201115
  Transmission Date: 20210113
  Serious: Yes (Other)
  Sender: FDA-Public Use
  Company Number: CN-UCBSA-2020029041

PATIENT
  Age: 0 Year
  Sex: Male
  Weight: 3.6 kg

DRUGS (1)
  1. CIMZIA [Suspect]
     Active Substance: CERTOLIZUMAB PEGOL
     Indication: ANKYLOSING SPONDYLITIS
     Dosage: 200 MILLIGRAM, EV 2 WEEKS(QOW)
     Route: 064
     Dates: start: 20200120, end: 20200527

REACTIONS (3)
  - Maternal exposure during pregnancy [Unknown]
  - Exposure via breast milk [Unknown]
  - Premature baby [Unknown]

NARRATIVE: CASE EVENT DATE: 20200120
